FAERS Safety Report 8523971-0 (Version None)
Quarter: 2012Q3

REPORT INFORMATION
  Report Type: 
  Country: None (occurrence: None)
  Receive Date: 20120720
  Receipt Date: 20120711
  Transmission Date: 20120928
  Serious: Yes (Hospitalization, Other)
  Sender: FDA-Public Use
  Company Number: US-ELI_LILLY_AND_COMPANY-US201206004558

PATIENT
  Sex: Female

DRUGS (17)
  1. DIOVAN [Concomitant]
     Dosage: 160 MG, QD
  2. PRILOSEC [Concomitant]
     Dosage: UNK, QD
  3. MULTI-VITAMIN [Concomitant]
     Dosage: UNK
  4. VESICARE [Concomitant]
     Dosage: 10 MEQ, BID
  5. CALCIUM [Concomitant]
     Dosage: UNK
  6. MAGNESIUM SULFATE [Concomitant]
     Dosage: UNK
  7. METOPROLOL SUCCINATE [Concomitant]
     Dosage: 50 MG, BID
  8. SINEMET [Concomitant]
     Dosage: UNK, BID
  9. REGLAN [Concomitant]
     Dosage: 5 MG, BID
  10. FOLIC ACID [Concomitant]
     Dosage: UNK
  11. NEURONTIN [Concomitant]
     Dosage: 30 MG, TID
  12. ANTIVERT [Concomitant]
     Dosage: 12.5 MG, QD
  13. VITAMIN D [Concomitant]
     Dosage: UNK
  14. FORTEO [Suspect]
     Indication: OSTEOPOROSIS
     Dosage: 20 UG, QD
     Dates: start: 20110401
  15. ELAVIL [Concomitant]
     Dosage: 25 MG, UNK
  16. RESTORIL [Concomitant]
     Dosage: 30 MG, UNK
  17. POTASSIUM CHLORIDE [Concomitant]
     Dosage: 10 MEQ, BID

REACTIONS (15)
  - VOMITING [None]
  - CONFUSIONAL STATE [None]
  - MEMORY IMPAIRMENT [None]
  - LOSS OF CONSCIOUSNESS [None]
  - UPPER LIMB FRACTURE [None]
  - RIB FRACTURE [None]
  - FOOT FRACTURE [None]
  - MALAISE [None]
  - HAND FRACTURE [None]
  - JOINT INJURY [None]
  - DELIRIUM [None]
  - FALL [None]
  - URINARY TRACT INFECTION [None]
  - PELVIC FRACTURE [None]
  - LIMB INJURY [None]
